FAERS Safety Report 20227999 (Version 1)
Quarter: 2021Q4

REPORT INFORMATION
  Report Type: Report from Study
  Country: US (occurrence: US)
  Receive Date: 20211224
  Receipt Date: 20211224
  Transmission Date: 20220303
  Serious: Yes (Other)
  Sender: FDA-Public Use
  Company Number: US-JNJFOC-20211247325

PATIENT
  Age: 47 Year
  Sex: Female

DRUGS (4)
  1. SPRAVATO [Suspect]
     Active Substance: ESKETAMINE
     Indication: Depression
     Dosage: 1 DOSE
     Dates: start: 20200916, end: 20200916
  2. SPRAVATO [Suspect]
     Active Substance: ESKETAMINE
     Dosage: 13 DOSES
     Dates: start: 20200918, end: 20210112
  3. SPRAVATO [Suspect]
     Active Substance: ESKETAMINE
     Dosage: 31 DOSES
     Dates: start: 20210309, end: 20211207
  4. SPRAVATO [Suspect]
     Active Substance: ESKETAMINE
     Dosage: RECENT DOSE
     Dates: start: 20211216, end: 20211216

REACTIONS (2)
  - Vomiting [Recovered/Resolved]
  - Nausea [Recovered/Resolved]

NARRATIVE: CASE EVENT DATE: 20211216
